FAERS Safety Report 8262188-4 (Version None)
Quarter: 2012Q2

REPORT INFORMATION
  Report Type: 
  Country: None (occurrence: None)
  Receive Date: 20120405
  Receipt Date: 20120322
  Transmission Date: 20120825
  Serious: Yes (Hospitalization)
  Sender: FDA-Public Use
  Company Number: RO-ROCHE-1052831

PATIENT
  Age: 27 Year
  Sex: Male

DRUGS (3)
  1. PEGINTERFERON ALFA-2A [Suspect]
     Indication: HEPATITIS C
     Dosage: LAST DOSE PRIOR TO SAE: 28/FEB/2012
     Dates: start: 20110530
  2. TG4040 (MVA-HCV) [Suspect]
     Indication: HEPATITIS C
     Dosage: LAST ODSE PRIOR TO SAE: 19/SEP/2011
     Dates: start: 20110228
  3. COPEGUS [Suspect]
     Indication: HEPATITIS C
     Dosage: LAST DOSE PRIOR TO SAE: 04/MAR/2012
     Dates: start: 20110530

REACTIONS (1)
  - CLINICALLY ISOLATED SYNDROME [None]
